FAERS Safety Report 22896551 (Version 4)
Quarter: 2023Q4

REPORT INFORMATION
  Report Type: Report from Study
  Country: IE (occurrence: None)
  Receive Date: 20230901
  Receipt Date: 20231004
  Transmission Date: 20240110
  Serious: Yes (Hospitalization)
  Sender: FDA-Public Use
  Company Number: IE-Eisai Medical Research-EC-2023-147965

PATIENT
  Age: 56 Year
  Sex: Male
  Weight: 61 kg

DRUGS (11)
  1. LENVATINIB [Suspect]
     Active Substance: LENVATINIB
     Indication: Clear cell renal cell carcinoma
     Dosage: STARTING DOSE AT 20 MG (FLUCTUATED DOSAGE)
     Route: 048
     Dates: start: 20230406
  2. QUAVONLIMAB [Suspect]
     Active Substance: QUAVONLIMAB
     Indication: Clear cell renal cell carcinoma
     Dosage: MK-1308 25MG + PEMBROLIZUMAB 400MG
     Route: 041
     Dates: start: 20230406, end: 20230712
  3. ZOLPIDEM [Concomitant]
     Active Substance: ZOLPIDEM TARTRATE
     Dates: start: 202301
  4. FOLIC ACID [Concomitant]
     Active Substance: FOLIC ACID
     Dates: start: 202211
  5. SOLPADEIN [Concomitant]
     Dates: start: 202211
  6. AMLODIPINE [Concomitant]
     Active Substance: AMLODIPINE BESYLATE
     Dates: start: 202211
  7. SILCOCK^S BASE CREAM [Concomitant]
     Dates: start: 20230530
  8. ELOCON [MOMETASONE FUROATE] [Concomitant]
     Dates: start: 20230530
  9. LEVOTHYROXINE [Concomitant]
     Active Substance: LEVOTHYROXINE
     Dates: start: 20230602
  10. ENSURE PLUS ADVANCE [Concomitant]
     Dates: start: 20230627, end: 20230829
  11. PEMBROLIZUMAB [Suspect]
     Active Substance: PEMBROLIZUMAB

REACTIONS (1)
  - Fatigue [Recovered/Resolved]

NARRATIVE: CASE EVENT DATE: 20230821
